FAERS Safety Report 5429862-6 (Version None)
Quarter: 2007Q3

REPORT INFORMATION
  Report Type: 
  Country: None (occurrence: None)
  Receive Date: 20070827
  Receipt Date: 20070806
  Transmission Date: 20080115
  Serious: Yes (Other)
  Sender: FDA-Public Use
  Company Number: 2007RR-09157

PATIENT
  Age: 77 Year
  Sex: Male

DRUGS (18)
  1. CLARITHROMYCIN [Suspect]
     Dosage: 500 MG, BID
  2. NIFEDIPINE [Suspect]
     Indication: HYPERTENSION
     Dosage: 60 MG, BID, 60 MG, QD, ORAL
     Route: 048
  3. CAPTOPRIL [Concomitant]
  4. DOXAZOSIN (DOXAZOSIN) [Concomitant]
  5. AMLODIPINE BASICS (AMLODIPINE) [Concomitant]
  6. LISINOPRIL [Concomitant]
  7. HYDROCHLOROTHIAZIDE [Concomitant]
  8. METFORMIN HCL [Concomitant]
  9. QUINAPRIL HCL [Concomitant]
  10. GLYBURIDE [Concomitant]
  11. ASPIRIN [Concomitant]
  12. ALBUTEROL [Concomitant]
  13. BUDESONIDE [Concomitant]
  14. LITHIUM CARBONATE [Concomitant]
  15. VALSARTAN [Concomitant]
  16. CEFUROXIIME (CEFUROXIME) [Concomitant]
  17. NOREPINEPHRINE BITARTRATE [Concomitant]
  18. FUIROSEMIDE (FUROSEMIDE) [Concomitant]

REACTIONS (8)
  - ATRIOVENTRICULAR BLOCK [None]
  - BLOOD PRESSURE INADEQUATELY CONTROLLED [None]
  - CANDIDIASIS [None]
  - DRUG INTERACTION INHIBITION [None]
  - ELECTROCARDIOGRAM QRS COMPLEX SHORTENED [None]
  - LEGIONELLA SEROLOGY POSITIVE [None]
  - MULTI-ORGAN FAILURE [None]
  - SHOCK [None]
